FAERS Safety Report 21423496 (Version 3)
Quarter: 2023Q1

REPORT INFORMATION
  Report Type: Spontaneous
  Country: US (occurrence: US)
  Receive Date: 20221007
  Receipt Date: 20230110
  Transmission Date: 20230418
  Serious: Yes (Hospitalization, Other)
  Sender: FDA-Public Use
  Company Number: US-BRISTOL-MYERS SQUIBB COMPANY-2022-116054

PATIENT
  Age: 92 Year
  Sex: Female
  Weight: 78.9 kg

DRUGS (32)
  1. POMALYST [Suspect]
     Active Substance: POMALIDOMIDE
     Indication: Plasma cell myeloma
     Dosage: 21 DAYS ON 7 DAYS OFF
     Route: 048
     Dates: start: 20220711
  2. POMALYST [Suspect]
     Active Substance: POMALIDOMIDE
     Dosage: 21 DAYS ON 7 DAYS OFF
     Dates: start: 20221003
  3. POMALYST [Suspect]
     Active Substance: POMALIDOMIDE
     Dosage: 21 DAYS ON 7 DAYS OFF
     Route: 048
     Dates: start: 20220711, end: 20221206
  4. ADVAIR HFA [Concomitant]
     Active Substance: FLUTICASONE PROPIONATE\SALMETEROL XINAFOATE
     Indication: Product used for unknown indication
  5. AMLODIPINE [Concomitant]
     Active Substance: AMLODIPINE BESYLATE
  6. LORATADINE [Concomitant]
     Active Substance: LORATADINE
  7. COREG [Concomitant]
     Active Substance: CARVEDILOL
  8. CYCLOBENZAPRINE [Concomitant]
     Active Substance: CYCLOBENZAPRINE
  9. DECADRON [Concomitant]
     Active Substance: DEXAMETHASONE
  10. DIAZEPAM [Concomitant]
     Active Substance: DIAZEPAM
  11. FOLIC ACID [Concomitant]
     Active Substance: FOLIC ACID
     Route: 048
  12. LASIX [Concomitant]
     Active Substance: FUROSEMIDE
  13. MAGNESIUM SALICYLATE [Concomitant]
     Active Substance: MAGNESIUM SALICYLATE
  14. PLAVIX [Concomitant]
     Active Substance: CLOPIDOGREL BISULFATE
  15. PRAVASTATIN [Concomitant]
     Active Substance: PRAVASTATIN
  16. PROVENTIL [Concomitant]
     Active Substance: ALBUTEROL
  17. SINGULAIR [Concomitant]
     Active Substance: MONTELUKAST SODIUM
  18. TRAMADOL [Concomitant]
     Active Substance: TRAMADOL
  19. VITAMIN C [Concomitant]
     Active Substance: ASCORBIC ACID
  20. VITAMIN E [Concomitant]
     Active Substance: .ALPHA.-TOCOPHEROL
  21. ZINC SALICYLATE [Concomitant]
     Active Substance: ZINC SALICYLATE
  22. ASPIRIN [Concomitant]
     Active Substance: ASPIRIN
  23. CARVEDILOL [Concomitant]
     Active Substance: CARVEDILOL
     Indication: Product used for unknown indication
     Route: 048
  24. DEXAMETHASONE [Concomitant]
     Active Substance: DEXAMETHASONE
     Indication: Plasma cell myeloma
     Route: 048
  25. FEXOFENADINE [Concomitant]
     Active Substance: FEXOFENADINE HYDROCHLORIDE
     Indication: Product used for unknown indication
     Route: 048
  26. LOSARTAN [Concomitant]
     Active Substance: LOSARTAN
     Indication: Product used for unknown indication
     Route: 048
  27. MONTELUKAST [Concomitant]
     Active Substance: MONTELUKAST SODIUM
     Indication: Product used for unknown indication
     Route: 048
  28. GABAPENTIN [Concomitant]
     Active Substance: GABAPENTIN
     Indication: Product used for unknown indication
  29. HYDROCODONE [Concomitant]
     Active Substance: HYDROCODONE
     Indication: Product used for unknown indication
  30. LEVOFLOXACIN [Concomitant]
     Active Substance: LEVOFLOXACIN
     Indication: Product used for unknown indication
  31. PRILOSEC [Concomitant]
     Active Substance: OMEPRAZOLE MAGNESIUM
     Indication: Product used for unknown indication
  32. ERGOCALCIFEROL [Concomitant]
     Active Substance: ERGOCALCIFEROL
     Indication: Product used for unknown indication

REACTIONS (3)
  - Urinary tract infection [Recovered/Resolved]
  - Febrile neutropenia [Recovered/Resolved]
  - Neutropenia [Unknown]

NARRATIVE: CASE EVENT DATE: 20220831
